FAERS Safety Report 8539750 (Version 2)
Quarter: 2013Q3

REPORT INFORMATION
  Report Type: Spontaneous
  Country: US (occurrence: None)
  Receive Date: 20120315
  Receipt Date: 20130724
  Transmission Date: 20140515
  Serious: Yes (Other)
  Sender: FDA-Public Use
  Company Number: PHHY2010US89333

PATIENT
  Age: 48 Year
  Sex: Female
  Weight: 59 kg

DRUGS (7)
  1. GILENYA [Suspect]
     Indication: MULTIPLE SCLEROSIS
     Dosage: 0.5 MG, QD, ORAL
     Route: 048
     Dates: start: 20101216
  2. IBUPROFEN (IBUPROFEN) [Concomitant]
  3. NEURONTIN [Concomitant]
  4. VITAMIN D (ERGOCALCIFEROL) [Concomitant]
  5. CARBAMAZEPINE [Concomitant]
  6. LORAZEPAM [Concomitant]
  7. BACLOFEN [Concomitant]

REACTIONS (5)
  - Multiple sclerosis relapse [None]
  - Diarrhoea [None]
  - Chest pain [None]
  - Pain in extremity [None]
  - Headache [None]
